FAERS Safety Report 7815717-6 (Version None)
Quarter: 2011Q4

REPORT INFORMATION
  Report Type: 
  Country: None (occurrence: None)
  Receive Date: 20111014
  Receipt Date: 20111005
  Transmission Date: 20120403
  Serious: Yes (Disabling)
  Sender: FDA-Public Use
  Company Number: JP-NOVOPROD-316487

PATIENT

DRUGS (2)
  1. NORDITROPIN [Suspect]
     Dosage: 0.6 MG/WEEK
     Route: 058
     Dates: start: 20110520
  2. NORDITROPIN [Suspect]
     Indication: GROWTH HORMONE DEFICIENCY
     Dosage: 2.5-4.2MG/WEEK
     Route: 058
     Dates: start: 20081010, end: 20100602

REACTIONS (1)
  - ARTHRITIS [None]
